FAERS Safety Report 8913269 (Version 2)
Quarter: 2013Q1

REPORT INFORMATION
  Report Type: Spontaneous
  Country: US (occurrence: US)
  Receive Date: 20121116
  Receipt Date: 20130103
  Transmission Date: 20140127
  Serious: No
  Sender: FDA-Public Use
  Company Number: US-BIOGENIDEC-2012BI052554

PATIENT
  Age: 60 None
  Sex: Female

DRUGS (5)
  1. AVONEX [Suspect]
     Indication: MULTIPLE SCLEROSIS
     Route: 030
     Dates: start: 20000806, end: 2003
  2. AVONEX [Suspect]
     Indication: MULTIPLE SCLEROSIS
     Route: 030
     Dates: start: 2003
  3. ADVIL [Concomitant]
     Indication: PREMEDICATION
  4. ADVIL [Concomitant]
     Indication: PAIN PROPHYLAXIS
  5. ADVIL [Concomitant]
     Indication: PREMEDICATION

REACTIONS (16)
  - Somnolence [Recovered/Resolved]
  - Haemorrhage [Unknown]
  - Pollakiuria [Not Recovered/Not Resolved]
  - Frustration [Not Recovered/Not Resolved]
  - Injection site haemorrhage [Unknown]
  - Urine output increased [Recovered/Resolved]
  - Influenza like illness [Recovered/Resolved]
  - Headache [Not Recovered/Not Resolved]
  - Palpitations [Recovered/Resolved]
  - Muscle tightness [Recovered/Resolved]
  - Musculoskeletal stiffness [Not Recovered/Not Resolved]
  - Pain [Not Recovered/Not Resolved]
  - Depression [Unknown]
  - Suicidal ideation [Unknown]
  - Feeling hot [Not Recovered/Not Resolved]
  - Chills [Not Recovered/Not Resolved]
